FAERS Safety Report 24169160 (Version 1)
Quarter: 2024Q3

REPORT INFORMATION
  Report Type: Spontaneous
  Country: US (occurrence: US)
  Receive Date: 20240802
  Receipt Date: 20240802
  Transmission Date: 20241016
  Serious: No
  Sender: SANOFI AVENTIS
  Company Number: US-SANOFI-02157507

PATIENT
  Sex: Male

DRUGS (1)
  1. DUPIXENT [Suspect]
     Active Substance: DUPILUMAB
     Indication: Dermatitis atopic
     Dosage: 300 MG, Q4W

REACTIONS (4)
  - Dry skin [Recovered/Resolved]
  - Rash macular [Recovering/Resolving]
  - Skin exfoliation [Recovered/Resolved]
  - Erythema [Unknown]
